FAERS Safety Report 24436701 (Version 1)
Quarter: 2024Q4

REPORT INFORMATION
  Report Type: Spontaneous
  Country: IT (occurrence: IT)
  Receive Date: 20241015
  Receipt Date: 20241015
  Transmission Date: 20250115
  Serious: Yes (Hospitalization)
  Sender: AAVIS PHARMACEUTICALS
  Company Number: IT-AVS-000023

PATIENT
  Age: 73 Year
  Sex: Male

DRUGS (3)
  1. DICLOFENAC POTASSIUM [Suspect]
     Active Substance: DICLOFENAC POTASSIUM
     Indication: Back pain
     Route: 030
  2. AMLODIPINE [Concomitant]
     Active Substance: AMLODIPINE BESYLATE
     Indication: Hypertension
     Route: 065
  3. DICLOFENAC POTASSIUM [Suspect]
     Active Substance: DICLOFENAC POTASSIUM
     Indication: Back pain
     Dosage: RECEIVED TWO ADDITIONAL DICLOFENAC INTRAMUSCULAR INJECTIONS ON THE SAME DAY.
     Route: 030

REACTIONS (2)
  - Electrolyte imbalance [Recovered/Resolved]
  - Intentional product misuse [Unknown]
